FAERS Safety Report 15587198 (Version 1)
Quarter: 2018Q4

REPORT INFORMATION
  Report Type: Spontaneous
  Country: US (occurrence: US)
  Receive Date: 20181105
  Receipt Date: 20181105
  Transmission Date: 20190205
  Serious: Yes (Hospitalization)
  Sender: FDA-Public Use
  Company Number: US-ASTRAZENECA-2018SF44379

PATIENT
  Sex: Male

DRUGS (1)
  1. SYNAGIS [Suspect]
     Active Substance: PALIVIZUMAB
     Route: 030

REACTIONS (5)
  - Dyspnoea [Unknown]
  - Ill-defined disorder [Unknown]
  - Oral mucosal erythema [Unknown]
  - Bronchitis [Unknown]
  - Decreased appetite [Unknown]
